FAERS Safety Report 7486018-3 (Version None)
Quarter: 2011Q2

REPORT INFORMATION
  Report Type: 
  Country: None (occurrence: None)
  Receive Date: 20110517
  Receipt Date: 20110512
  Transmission Date: 20111010
  Serious: Yes (Other)
  Sender: FDA-Public Use
  Company Number: CHPA2011GB06676

PATIENT
  Age: 58 Year
  Sex: Female

DRUGS (1)
  1. OTRIVIN [Suspect]
     Indication: EYE INJURY
     Dosage: 6 DOSES USED IN 2 DAYS
     Dates: start: 20110301, end: 20110301

REACTIONS (3)
  - DRUG DISPENSING ERROR [None]
  - PERIORBITAL CELLULITIS [None]
  - INCORRECT ROUTE OF DRUG ADMINISTRATION [None]
